FAERS Safety Report 20425660 (Version 1)
Quarter: 2022Q1

REPORT INFORMATION
  Report Type: Report from Study
  Country: US (occurrence: US)
  Receive Date: 20220204
  Receipt Date: 20220204
  Transmission Date: 20220424
  Serious: No
  Sender: FDA-Public Use
  Company Number: US-EXELIXIS-CABO-21039381

PATIENT
  Sex: Female
  Weight: 68.027 kg

DRUGS (13)
  1. CABOMETYX [Suspect]
     Active Substance: CABOZANTINIB S-MALATE
     Indication: Renal cancer
     Dosage: 40 MG, QD
     Route: 048
     Dates: start: 20210214
  2. BISACODYL [Concomitant]
     Active Substance: BISACODYL
  3. MICARDIS [Concomitant]
     Active Substance: TELMISARTAN
  4. MOMETASONE FUROATE [Concomitant]
     Active Substance: MOMETASONE FUROATE
  5. KETOCONAZOLE [Concomitant]
     Active Substance: KETOCONAZOLE
  6. TRIAMCINOLONE ACETONIDE [Concomitant]
     Active Substance: TRIAMCINOLONE ACETONIDE
  7. ACYCLOVIR [Concomitant]
     Active Substance: ACYCLOVIR
  8. TRAZODONE HCL [Concomitant]
     Active Substance: TRAZODONE HYDROCHLORIDE
  9. ESCITALOPRAM OXALATE [Concomitant]
     Active Substance: ESCITALOPRAM OXALATE
  10. LORAZEPAM [Concomitant]
     Active Substance: LORAZEPAM
  11. STOOL SOFTENER (DOCUSATE) [Concomitant]
     Active Substance: DOCUSATE
  12. PROCTO MED HC [Concomitant]
  13. PROBIOTICS NOS [Concomitant]
     Active Substance: PROBIOTICS NOS

REACTIONS (9)
  - Contusion [Unknown]
  - Skin lesion [Unknown]
  - Glossodynia [Unknown]
  - Genital rash [Unknown]
  - Gastrooesophageal reflux disease [Unknown]
  - Dyspepsia [Unknown]
  - Stomatitis [Unknown]
  - Impaired healing [Unknown]
  - Insomnia [Unknown]
